FAERS Safety Report 19174722 (Version 1)
Quarter: 2021Q2

REPORT INFORMATION
  Report Type: Spontaneous
  Country: CN (occurrence: CN)
  Receive Date: 20210423
  Receipt Date: 20210423
  Transmission Date: 20210717
  Serious: Yes (Hospitalization)
  Sender: FDA-Public Use
  Company Number: CN-BAYER-2021-129070

PATIENT
  Age: 64 Year
  Sex: Female
  Weight: 65 kg

DRUGS (1)
  1. IOPROMIDE. [Suspect]
     Active Substance: IOPROMIDE
     Indication: ANGIOCARDIOGRAM
     Dosage: 160 ML, ONCE
     Route: 013
     Dates: start: 20210308, end: 20210308

REACTIONS (7)
  - Vision blurred [Recovering/Resolving]
  - Contrast encephalopathy [Recovering/Resolving]
  - Binocular eye movement disorder [Recovering/Resolving]
  - Eye movement disorder [Recovering/Resolving]
  - Eye disorder [Recovering/Resolving]
  - IIIrd nerve paralysis [Recovering/Resolving]
  - Dizziness [Recovering/Resolving]

NARRATIVE: CASE EVENT DATE: 20210308
